FAERS Safety Report 9417125 (Version 3)
Quarter: 2014Q1

REPORT INFORMATION
  Report Type: Spontaneous
  Country: JP (occurrence: JP)
  Receive Date: 20130724
  Receipt Date: 20140220
  Transmission Date: 20141002
  Serious: Yes (Life-Threatening, Other)
  Sender: FDA-Public Use
  Company Number: JP-TEVA-407218USA

PATIENT
  Age: 61 Year
  Sex: Female

DRUGS (2)
  1. BENDAMUSTINE [Suspect]
     Indication: B-CELL LYMPHOMA
     Route: 042
     Dates: start: 20120618, end: 20120619
  2. BENDAMUSTINE [Suspect]
     Indication: SPLENIC MARGINAL ZONE LYMPHOMA
     Route: 042
     Dates: start: 20120722, end: 20120723

REACTIONS (3)
  - Neutrophil count decreased [Recovered/Resolved]
  - Varicella [Recovered/Resolved]
  - Platelet count decreased [Recovered/Resolved]
